FAERS Safety Report 5293669-3 (Version None)
Quarter: 2007Q2

REPORT INFORMATION
  Report Type: 
  Country: None (occurrence: None)
  Receive Date: 20070411
  Receipt Date: 20070327
  Transmission Date: 20071010
  Serious: Yes (Other)
  Sender: FDA-Public Use
  Company Number: US-SHR-US-2007-001255

PATIENT
  Age: 56 Year
  Sex: Female
  Weight: 93.424 kg

DRUGS (11)
  1. BETASERON [Suspect]
     Indication: RELAPSING-REMITTING MULTIPLE SCLEROSIS
     Dosage: 6 MIU, EVERY 2D
     Route: 058
     Dates: start: 20061211, end: 20061201
  2. BETASERON [Suspect]
     Dosage: 8 MIU, EVERY 2D
     Route: 058
     Dates: start: 20061201
  3. BETASERON [Suspect]
     Dosage: 6 MIU, EVERY 2D
     Route: 058
  4. BETASERON [Suspect]
     Dosage: 8 MIU, EVERY 2D
     Route: 058
  5. ZOLOFT [Concomitant]
     Indication: DEPRESSION
  6. CELEBREX [Concomitant]
     Indication: ARTHRITIS
     Dosage: 200 MG/D, UNK
     Route: 048
     Dates: start: 20050101
  7. ALEVE [Concomitant]
     Indication: PREMEDICATION
     Dates: end: 20070101
  8. SERTRALINE HYDROCHLORIDE [Concomitant]
     Indication: DEPRESSION
     Dosage: 100 MG/D, UNK
     Route: 048
  9. VITAMIN B-12 [Concomitant]
     Indication: MULTIPLE SCLEROSIS
     Dosage: 1 CAP(S), 1X/DAY
     Route: 048
  10. FERROUS SULFATE [Concomitant]
     Dosage: 325 MG/D, UNK
     Route: 048
     Dates: start: 20040101
  11. ACIPHEX [Concomitant]

REACTIONS (12)
  - BLOOD CALCIUM DECREASED [None]
  - BLOOD IRON DECREASED [None]
  - BLOOD POTASSIUM DECREASED [None]
  - COELIAC DISEASE [None]
  - DYSPNOEA [None]
  - FATIGUE [None]
  - HAEMOGLOBIN DECREASED [None]
  - HYPOPROTEINAEMIA [None]
  - INJECTION SITE ERYTHEMA [None]
  - MALAISE [None]
  - MOUNTAIN SICKNESS ACUTE [None]
  - PALLOR [None]
